FAERS Safety Report 8071805 (Version 4)
Quarter: 2013Q2

REPORT INFORMATION
  Report Type: Report from Study
  Country: MX (occurrence: MX)
  Receive Date: 20110805
  Receipt Date: 20130613
  Transmission Date: 20140414
  Serious: Yes (Hospitalization)
  Sender: FDA-Public Use
  Company Number: PHHY2011MX68447

PATIENT
  Age: 74 Year
  Sex: Male

DRUGS (8)
  1. EXELON PATCH [Suspect]
     Indication: DEMENTIA ALZHEIMER^S TYPE
     Dosage: 4.6 MG (PATCH 5 CM2), DAILY
     Route: 062
     Dates: start: 20110615, end: 20110622
  2. GLIBENCLAMIDE [Concomitant]
     Dosage: UNK UKN, UNK
  3. METFORMIN [Concomitant]
     Dosage: UNK UKN, UNK
  4. MEMANTINE [Concomitant]
     Dosage: 2 DF, QD
     Route: 048
  5. ENALAPRIL [Concomitant]
     Indication: BLOOD PRESSURE INCREASED
     Dosage: 2 DF, QD
     Route: 048
  6. INSULIN [Concomitant]
     Dosage: 20 IU, BID
  7. INSULIN [Concomitant]
     Dosage: 20 IU DAILY
  8. DRUG THERAPY NOS [Concomitant]
     Indication: INSOMNIA
     Dosage: UNK UKN, UNK

REACTIONS (10)
  - Shock [Unknown]
  - Loss of consciousness [Unknown]
  - Peripheral coldness [Unknown]
  - Hypothermia [Not Recovered/Not Resolved]
  - Diarrhoea [Not Recovered/Not Resolved]
  - Dehydration [Not Recovered/Not Resolved]
  - Anger [Not Recovered/Not Resolved]
  - Decreased appetite [Unknown]
  - Hypophagia [Unknown]
  - Depressed mood [Unknown]
